FAERS Safety Report 23506963 (Version 1)
Quarter: 2024Q1

REPORT INFORMATION
  Report Type: Spontaneous
  Country: CN (occurrence: CN)
  Receive Date: 20240209
  Receipt Date: 20240209
  Transmission Date: 20240410
  Serious: Yes (Other)
  Sender: FDA-Public Use
  Company Number: CN-002147023-NVSC2024CN028197

PATIENT
  Age: 48 Year
  Sex: Male
  Weight: 82 kg

DRUGS (2)
  1. ENTRESTO [Suspect]
     Active Substance: SACUBITRIL\VALSARTAN
     Indication: Hypertension
     Dosage: 2 DOSAGE FORM, QD (TABLET)
     Route: 048
     Dates: start: 20240130, end: 20240130
  2. ENTRESTO [Suspect]
     Active Substance: SACUBITRIL\VALSARTAN
     Dosage: 1 DOSAGE FORM, BID (PILL)
     Route: 048
     Dates: start: 20240130, end: 20240203

REACTIONS (2)
  - Angioedema [Recovering/Resolving]
  - Phlebitis [Recovered/Resolved]

NARRATIVE: CASE EVENT DATE: 20240202
